FAERS Safety Report 9681580 (Version 1)
Quarter: 2013Q4

REPORT INFORMATION
  Report Type: Spontaneous
  Country: US (occurrence: US)
  Receive Date: 20131111
  Receipt Date: 20131111
  Transmission Date: 20140711
  Serious: No
  Sender: FDA-Public Use
  Company Number: US-ENDO PHARMACEUTICALS INC.-CLON20120002

PATIENT
  Age: 73 Year
  Sex: Male

DRUGS (2)
  1. CLONIDINE HCL TABLETS 0.1MG [Suspect]
     Indication: BLOOD PRESSURE INCREASED
     Route: 048
     Dates: start: 201202
  2. PROPAFENONE HYDROCHLORIDE TABLETS 300MG [Suspect]
     Indication: ATRIAL FIBRILLATION
     Route: 048
     Dates: start: 201203

REACTIONS (2)
  - Heart rate increased [Recovering/Resolving]
  - Drug effect decreased [Not Recovered/Not Resolved]
